FAERS Safety Report 9000336 (Version 1)
Quarter: 2013Q1

REPORT INFORMATION
  Report Type: Spontaneous
  Country: US (occurrence: None)
  Receive Date: 20130102
  Receipt Date: 20130102
  Transmission Date: 20140127
  Serious: Yes (Hospitalization)
  Sender: FDA-Public Use
  Company Number: None

PATIENT
  Sex: Female
  Weight: 38.5 kg

DRUGS (5)
  1. ETOPOSIDE (VP-16) [Suspect]
  2. CYCLOPHOSPHAMIDE [Suspect]
  3. DOXORUBICIN HYDROCHLORIDE [Suspect]
  4. IFOSFAMIDE [Suspect]
  5. VINCRISTINE SULFATE [Suspect]

REACTIONS (2)
  - Myelodysplastic syndrome [None]
  - Acute myeloid leukaemia [None]
